FAERS Safety Report 11323580 (Version 1)
Quarter: 2015Q3

REPORT INFORMATION
  Report Type: Spontaneous
  Country: US (occurrence: US)
  Receive Date: 20150730
  Receipt Date: 20150730
  Transmission Date: 20151125
  Serious: Yes (Life-Threatening)
  Sender: FDA-Public Use
  Company Number: US-BAYER-2015-386485

PATIENT
  Age: 31 Year
  Sex: Male

DRUGS (1)
  1. ACETYLSALICYLIC ACID (} 100 MG) [Suspect]
     Active Substance: ASPIRIN
     Indication: HEADACHE
     Dosage: 975 MG, THE EVENING PRIOR THE ADVERSE EVENTS
     Route: 048

REACTIONS (2)
  - Acute kidney injury [Recovered/Resolved]
  - Acidosis [Recovered/Resolved]
